FAERS Safety Report 8710425 (Version 2)
Quarter: 2013Q4

REPORT INFORMATION
  Report Type: Report from Study
  Country: US (occurrence: US)
  Receive Date: 20120807
  Receipt Date: 20131101
  Transmission Date: 20140711
  Serious: No
  Sender: FDA-Public Use
  Company Number: US-009507513-1207USA010667

PATIENT
  Age: 57 Year
  Sex: Female
  Weight: 68.27 kg

DRUGS (4)
  1. VICTRELIS [Suspect]
     Dosage: 200 MG, UNK
  2. PEGASYS [Suspect]
  3. RIBAPAK [Suspect]
     Dosage: 1200, QD
  4. PREDNISONE [Concomitant]
     Dosage: 5 MG, UNK

REACTIONS (5)
  - Dyspnoea [Unknown]
  - Palpitations [Unknown]
  - Nausea [Unknown]
  - Dry mouth [Unknown]
  - Decreased appetite [Unknown]
